FAERS Safety Report 12723656 (Version 3)
Quarter: 2016Q4

REPORT INFORMATION
  Report Type: Spontaneous
  Country: AT (occurrence: AT)
  Receive Date: 20160908
  Receipt Date: 20161123
  Transmission Date: 20170207
  Serious: Yes (Hospitalization, Disabling, Other)
  Sender: FDA-Public Use
  Company Number: AT-BRISTOL-MYERS SQUIBB COMPANY-BMS-2016-072255

PATIENT
  Age: 41 Year
  Sex: Male

DRUGS (7)
  1. YERVOY [Suspect]
     Active Substance: IPILIMUMAB
     Indication: MALIGNANT MELANOMA
     Dosage: 3 MG/KG, UNK
     Route: 065
     Dates: start: 20160604
  2. EUTHYROX [Concomitant]
     Active Substance: LEVOTHYROXINE SODIUM
     Indication: PRODUCT USED FOR UNKNOWN INDICATION
     Dosage: UNK
     Route: 065
  3. OPDIVO [Suspect]
     Active Substance: NIVOLUMAB
     Indication: PRODUCT USED FOR UNKNOWN INDICATION
     Dosage: 3 MG/KG, UNK
     Route: 065
     Dates: start: 20160805
  4. YERVOY [Suspect]
     Active Substance: IPILIMUMAB
     Indication: PRODUCT USED FOR UNKNOWN INDICATION
     Dosage: 1 MG/KG, UNK
     Route: 065
     Dates: start: 20160805
  5. OPDIVO [Suspect]
     Active Substance: NIVOLUMAB
     Indication: PRODUCT USED FOR UNKNOWN INDICATION
     Dosage: 3 MG/KG, UNK
     Route: 065
     Dates: start: 20160715
  6. OPDIVO [Suspect]
     Active Substance: NIVOLUMAB
     Indication: MALIGNANT MELANOMA
     Dosage: 1 MG/KG, UNK
     Route: 065
     Dates: start: 20160604
  7. YERVOY [Suspect]
     Active Substance: IPILIMUMAB
     Indication: PRODUCT USED FOR UNKNOWN INDICATION
     Dosage: 1 MG/KG, UNK
     Route: 065
     Dates: start: 20160715

REACTIONS (6)
  - Pyelonephritis [Unknown]
  - Large intestine perforation [Unknown]
  - Pneumonitis [Recovering/Resolving]
  - Hyperthyroidism [Unknown]
  - Colectomy [Unknown]
  - Colitis [Recovering/Resolving]

NARRATIVE: CASE EVENT DATE: 20160930
